FAERS Safety Report 13587201 (Version 1)
Quarter: 2017Q2

REPORT INFORMATION
  Report Type: Spontaneous
  Country: JP (occurrence: JP)
  Receive Date: 20170526
  Receipt Date: 20170526
  Transmission Date: 20170830
  Serious: Yes (Other)
  Sender: FDA-Public Use
  Company Number: JP-SHIRE-JP201711751

PATIENT
  Age: 7 Decade
  Sex: Female

DRUGS (1)
  1. FOSRENOL [Suspect]
     Active Substance: LANTHANUM CARBONATE
     Indication: HYPERPHOSPHATAEMIA
     Dosage: UNK UNK, UNKNOWN
     Route: 048
     Dates: start: 2014

REACTIONS (3)
  - Intestinal mucosal atrophy [Unknown]
  - Medication residue present [Unknown]
  - Chronic gastritis [Unknown]

NARRATIVE: CASE EVENT DATE: 201612
